FAERS Safety Report 15239648 (Version 2)
Quarter: 2018Q3

REPORT INFORMATION
  Report Type: Report from Study
  Country: US (occurrence: US)
  Receive Date: 20180803
  Receipt Date: 20180924
  Transmission Date: 20181010
  Serious: Yes (Death, Hospitalization)
  Sender: FDA-Public Use
  Company Number: US-BAUSCH-BL-2018-021076

PATIENT
  Sex: Male
  Weight: 72 kg

DRUGS (7)
  1. LASIX [Concomitant]
     Active Substance: FUROSEMIDE
     Indication: PRODUCT USED FOR UNKNOWN INDICATION
  2. INDCLAV [Concomitant]
     Indication: PRODUCT USED FOR UNKNOWN INDICATION
  3. NEXAVAR [Concomitant]
     Active Substance: SORAFENIB
     Indication: PRODUCT USED FOR UNKNOWN INDICATION
  4. XIFAXAN [Suspect]
     Active Substance: RIFAXIMIN
     Indication: ENCEPHALOPATHY
     Route: 048
  5. LACTULOSE. [Concomitant]
     Active Substance: LACTULOSE
     Indication: PRODUCT USED FOR UNKNOWN INDICATION
  6. SPIRIVA [Concomitant]
     Active Substance: TIOTROPIUM BROMIDE MONOHYDRATE
     Indication: PRODUCT USED FOR UNKNOWN INDICATION
  7. ALDACTONE [Concomitant]
     Active Substance: SPIRONOLACTONE
     Indication: PRODUCT USED FOR UNKNOWN INDICATION

REACTIONS (2)
  - Hepatic failure [Fatal]
  - Hepatocellular carcinoma [Fatal]
